FAERS Safety Report 6368165-2 (Version None)
Quarter: 2009Q3

REPORT INFORMATION
  Report Type: 
  Country: None (occurrence: None)
  Receive Date: 20090922
  Receipt Date: 20090918
  Transmission Date: 20100115
  Serious: Yes (Life-Threatening, Other)
  Sender: FDA-Public Use
  Company Number: PHHY2009JP37325

PATIENT
  Age: 62 Year
  Sex: Male
  Weight: 57 kg

DRUGS (19)
  1. ZOMETA [Suspect]
     Indication: PROSTATE CANCER
     Dosage: 4 MG SINGLE DOSE
     Route: 042
     Dates: start: 20060911, end: 20060911
  2. ZOMETA [Suspect]
     Indication: METASTASES TO BONE
     Dosage: 4 MG SINGLE DOSE
     Route: 042
     Dates: start: 20060901, end: 20060901
  3. ZOMETA [Suspect]
     Dosage: 4 MG EVERY THREE WEEKS
     Route: 042
     Dates: start: 20061201, end: 20090101
  4. VOLTAREN-XR [Concomitant]
     Route: 048
  5. TAXOTERE [Concomitant]
     Route: 042
  6. MAINTATE [Concomitant]
     Dosage: 5 MG, UNK
     Route: 048
  7. ACINON [Concomitant]
     Dosage: 150 MG, UNK
     Route: 048
  8. URALYT [Concomitant]
     Route: 048
  9. GASCON [Concomitant]
     Dosage: 40 MG, UNK
     Route: 048
  10. DEPAS [Concomitant]
     Dosage: 0.4 MG, UNK
     Route: 048
  11. ETHINYLOESTRADIOL [Concomitant]
     Dosage: 0.5 MG, UNK
     Route: 048
  12. MAGLAX [Concomitant]
     Dosage: 250 MG, UNK
     Route: 048
  13. URIEF [Concomitant]
     Dosage: 4 MG, UNK
     Route: 048
  14. LASIX [Concomitant]
     Dosage: 20 MG, UNK
     Route: 048
  15. RINDERON [Concomitant]
     Dosage: 0.5 MG, UNK
  16. LUPRAC [Concomitant]
     Dosage: 4 MG, UNK
  17. OPSO DAINIPPON [Concomitant]
  18. OXYCONTIN [Concomitant]
     Route: 048
  19. DRUG THERAPY NOS [Concomitant]

REACTIONS (6)
  - ARTHRALGIA [None]
  - CHILLS [None]
  - ORAL PAIN [None]
  - OSTEONECROSIS [None]
  - POLLAKIURIA [None]
  - PYREXIA [None]
